FAERS Safety Report 19931940 (Version 1)
Quarter: 2021Q4

REPORT INFORMATION
  Report Type: Spontaneous
  Country: CN (occurrence: CN)
  Receive Date: 20211007
  Receipt Date: 20211007
  Transmission Date: 20220303
  Serious: Yes (Life-Threatening)
  Sender: FDA-Public Use
  Company Number: CN-BAXTER-2021BAX026351

PATIENT
  Age: 55 Year
  Sex: Female
  Weight: 55 kg

DRUGS (4)
  1. CYCLOPHOSPHAMIDE [Suspect]
     Active Substance: CYCLOPHOSPHAMIDE
     Indication: Breast cancer female
     Dosage: CYCLOPHOSPHAMIDE FOR INJECTION 900 MG + 0.9% SODIUM CHLORIDE FOR INJECTION 100ML
     Route: 041
     Dates: start: 20190919, end: 20190919
  2. SODIUM CHLORIDE [Suspect]
     Active Substance: SODIUM CHLORIDE
     Indication: Medication dilution
     Dosage: DILUENT FOR CYCLOPHOSPHAMIDE; IVGTT ST
     Route: 041
     Dates: start: 20200919, end: 20200919
  3. DEXTROSE [Suspect]
     Active Substance: DEXTROSE
     Indication: Medication dilution
     Dosage: DILUENT FOR PIRARUBICIN HYDROCHLORIDE; IVGTT ST;
     Route: 041
     Dates: start: 20200919, end: 20200919
  4. PIRARUBICIN HYDROCHLORIDE [Suspect]
     Active Substance: PIRARUBICIN HYDROCHLORIDE
     Indication: Breast cancer female
     Dosage: PIRARUBICIN HYDROCHLORIDE 90 MG + 5% GLUCOSE INJECTION 100ML;
     Route: 041
     Dates: start: 20190919, end: 20190919

REACTIONS (1)
  - Myelosuppression [Recovered/Resolved]

NARRATIVE: CASE EVENT DATE: 20200919
